FAERS Safety Report 8928587 (Version 1)
Quarter: 2012Q4

REPORT INFORMATION
  Report Type: 
  Country: GB (occurrence: GB)
  Receive Date: 20121128
  Receipt Date: 20121128
  Transmission Date: 20130627
  Serious: Yes (Life-Threatening, Hospitalization, Disabling, Other)
  Sender: FDA-Public Use
  Company Number: GB-ELI_LILLY_AND_COMPANY-GB201211004338

PATIENT
  Age: 87 Year
  Sex: Male
  Weight: 82 kg

DRUGS (3)
  1. DULOXETINE HYDROCHLORIDE [Suspect]
     Indication: DEPRESSION
     Dosage: 30mg, daily
     Route: 048
     Dates: start: 20120803, end: 20121102
  2. BECLOMETASONE [Concomitant]
  3. BUDESONIDE [Concomitant]
     Route: 055

REACTIONS (2)
  - Convulsion [Recovered/Resolved]
  - Loss of consciousness [Unknown]
